FAERS Safety Report 9435860 (Version 1)
Quarter: 2013Q3

REPORT INFORMATION
  Report Type: Spontaneous
  Country: US (occurrence: None)
  Receive Date: 20130801
  Receipt Date: 20130801
  Transmission Date: 20140515
  Serious: Yes (Other)
  Sender: FDA-Public Use
  Company Number: None

PATIENT
  Age: 53 Year
  Sex: Female
  Weight: 97.07 kg

DRUGS (1)
  1. VICTOZA [Suspect]
     Indication: WEIGHT DECREASED
     Dosage: 1.2 DAILY SQ
     Route: 058
     Dates: start: 20110211, end: 20130111

REACTIONS (2)
  - Off label use [None]
  - Hepatic pain [None]
